FAERS Safety Report 4940385-0 (Version None)
Quarter: 2006Q1

REPORT INFORMATION
  Report Type: 
  Country: None (occurrence: None)
  Receive Date: 20060310
  Receipt Date: 20050816
  Transmission Date: 20060701
  Serious: Yes (Hospitalization)
  Sender: FDA-Public Use
  Company Number: US-MERCK-0508USA02887

PATIENT
  Age: 42 Year
  Sex: Female
  Weight: 114 kg

DRUGS (7)
  1. VIOXX [Suspect]
     Indication: ARTHRALGIA
     Route: 048
     Dates: start: 19990101, end: 20020101
  2. VIOXX [Suspect]
     Route: 048
  3. VIOXX [Suspect]
     Route: 048
     Dates: end: 20020101
  4. TYLENOL (CAPLET) [Concomitant]
     Route: 065
  5. PREMARIN [Concomitant]
     Route: 065
  6. LOTENSIN [Concomitant]
     Route: 065
  7. ALDACTONE [Concomitant]
     Route: 065

REACTIONS (27)
  - ASTHENIA [None]
  - BACK DISORDER [None]
  - BLOOD PRESSURE INCREASED [None]
  - BRONCHITIS [None]
  - CEREBROVASCULAR ACCIDENT [None]
  - CHONDROCALCINOSIS PYROPHOSPHATE [None]
  - COLD SWEAT [None]
  - CONSTIPATION [None]
  - COUGH [None]
  - DIZZINESS [None]
  - DYSPEPSIA [None]
  - ECZEMA [None]
  - FATIGUE [None]
  - FLATULENCE [None]
  - HAEMORRHAGE [None]
  - HEADACHE [None]
  - HYPERCHOLESTEROLAEMIA [None]
  - HYPERHIDROSIS [None]
  - INCREASED TENDENCY TO BRUISE [None]
  - MEMORY IMPAIRMENT [None]
  - MUSCULOSKELETAL STIFFNESS [None]
  - NAUSEA [None]
  - NECK PAIN [None]
  - PERIARTHRITIS [None]
  - PYREXIA [None]
  - SLEEP DISORDER [None]
  - UPPER RESPIRATORY TRACT INFECTION [None]
